FAERS Safety Report 9415285 (Version 1)
Quarter: 2013Q3

REPORT INFORMATION
  Report Type: Spontaneous
  Country: DE (occurrence: DE)
  Receive Date: 20130723
  Receipt Date: 20130723
  Transmission Date: 20140515
  Serious: Yes (Hospitalization, Congenital Anomaly)
  Sender: FDA-Public Use
  Company Number: DE-PFIZER INC-2013212430

PATIENT
  Age: 1 Day
  Sex: Male
  Weight: 3.61 kg

DRUGS (1)
  1. ZOLOFT [Suspect]
     Indication: BIPOLAR I DISORDER
     Dosage: 25 MG, 1 IN 1 DAY
     Route: 064

REACTIONS (2)
  - Maternal exposure during pregnancy [Recovered/Resolved with Sequelae]
  - Exomphalos [Recovered/Resolved with Sequelae]
